FAERS Safety Report 24140547 (Version 1)
Quarter: 2024Q3

REPORT INFORMATION
  Report Type: Spontaneous
  Country: US (occurrence: US)
  Receive Date: 20240726
  Receipt Date: 20240726
  Transmission Date: 20241017
  Serious: Yes (Other)
  Sender: HIKMA
  Company Number: US-HIKMA PHARMACEUTICALS USA INC.-US-H14001-24-06397

PATIENT

DRUGS (3)
  1. CYTARABINE [Suspect]
     Active Substance: CYTARABINE
     Indication: Precursor T-lymphoblastic leukaemia acute
     Dosage: UNKNOWN
     Route: 065
  2. METHOTREXATE [Suspect]
     Active Substance: METHOTREXATE
     Indication: Precursor T-lymphoblastic leukaemia acute
     Dosage: UNKNOWN
     Route: 065
  3. VENETOCLAX [Suspect]
     Active Substance: VENETOCLAX
     Indication: Precursor T-lymphoblastic leukaemia acute
     Dosage: UNKNOWN
     Route: 065

REACTIONS (2)
  - Shock haemorrhagic [Unknown]
  - Gastrointestinal haemorrhage [Unknown]
